FAERS Safety Report 5866874-2 (Version None)
Quarter: 2008Q3

REPORT INFORMATION
  Report Type: 
  Country: None (occurrence: None)
  Receive Date: 20080902
  Receipt Date: 20080821
  Transmission Date: 20090109
  Serious: Yes (Other)
  Sender: FDA-Public Use
  Company Number: PHHY2008GB19652

PATIENT
  Sex: Male

DRUGS (2)
  1. CLOZARIL [Suspect]
     Indication: SCHIZOPHRENIA
     Dosage: 300 MG/DAY
     Route: 048
     Dates: start: 20010701
  2. CLOZARIL [Suspect]
     Dosage: 50 MG/WEEK

REACTIONS (3)
  - INCONTINENCE [None]
  - OBESITY [None]
  - SALIVARY HYPERSECRETION [None]
